FAERS Safety Report 7051891-X (Version None)
Quarter: 2010Q4

REPORT INFORMATION
  Report Type: 
  Country: None (occurrence: None)
  Receive Date: 20101019
  Receipt Date: 20101011
  Transmission Date: 20110411
  Serious: Yes (Other)
  Sender: FDA-Public Use
  Company Number: PT-ABBOTT-10P-130-0677275-00

PATIENT
  Sex: Female

DRUGS (1)
  1. KLACID 500 MG COATED TABLETS [Suspect]
     Indication: PRODUCT USED FOR UNKNOWN INDICATION
     Route: 048
     Dates: start: 20050401

REACTIONS (4)
  - CHOKING SENSATION [None]
  - DIZZINESS [None]
  - DYSPNOEA [None]
  - WHEEZING [None]
